FAERS Safety Report 8364593-4 (Version None)
Quarter: 2012Q2

REPORT INFORMATION
  Report Type: 
  Country: None (occurrence: None)
  Receive Date: 20120516
  Receipt Date: 20120514
  Transmission Date: 20120825
  Serious: Yes (Other)
  Sender: FDA-Public Use
  Company Number: CA-ROCHE-1069258

PATIENT
  Age: 64 Year
  Sex: Female

DRUGS (4)
  1. XELODA [Suspect]
     Indication: PRODUCT USED FOR UNKNOWN INDICATION
     Route: 065
  2. TYKERB [Suspect]
     Indication: PRODUCT USED FOR UNKNOWN INDICATION
     Route: 048
  3. TYKERB [Suspect]
  4. XELODA [Suspect]

REACTIONS (8)
  - BLOOD POTASSIUM INCREASED [None]
  - BLOOD CREATININE INCREASED [None]
  - DEHYDRATION [None]
  - DIARRHOEA [None]
  - RENAL FAILURE [None]
  - HYPOKALAEMIA [None]
  - RASH PRURITIC [None]
  - RASH MACULO-PAPULAR [None]
